FAERS Safety Report 7653900-3 (Version None)
Quarter: 2011Q3

REPORT INFORMATION
  Report Type: 
  Country: None (occurrence: None)
  Receive Date: 20110801
  Receipt Date: 20110801
  Transmission Date: 20111222
  Serious: No
  Sender: FDA-Public Use
  Company Number: None

PATIENT
  Sex: Female

DRUGS (1)
  1. COMBIPATCH [Suspect]
     Dosage: 0.05/0.25MG TWICE A WEEK TRANSDERMAL PATCH
     Route: 062
     Dates: start: 20110601, end: 20110701

REACTIONS (4)
  - APPLICATION SITE NODULE [None]
  - PRODUCT ADHESION ISSUE [None]
  - PRODUCT QUALITY ISSUE [None]
  - APPLICATION SITE ULCER [None]
